FAERS Safety Report 4375519-2 (Version None)
Quarter: 2004Q2

REPORT INFORMATION
  Report Type: 
  Country: None (occurrence: None)
  Receive Date: 20040607
  Receipt Date: 20040524
  Transmission Date: 20050107
  Serious: Yes (Hospitalization, Other)
  Sender: FDA-Public Use
  Company Number: US-SHR-04-024756

PATIENT
  Age: 62 Year
  Sex: Female

DRUGS (2)
  1. BETASERON [Suspect]
     Indication: MULTIPLE SCLEROSIS
     Dosage: 8 MIU, EVERY 2D, SUBCUTANEOUS
     Route: 058
     Dates: start: 20040106, end: 20040320
  2. ATENOLOL [Concomitant]

REACTIONS (6)
  - CONVULSION [None]
  - HYPERTENSIVE CRISIS [None]
  - INFLUENZA LIKE ILLNESS [None]
  - LEUKOENCEPHALOPATHY [None]
  - MIGRAINE [None]
  - NAUSEA [None]
